FAERS Safety Report 7637810-3 (Version None)
Quarter: 2011Q3

REPORT INFORMATION
  Report Type: 
  Country: None (occurrence: None)
  Receive Date: 20110720
  Receipt Date: 20110627
  Transmission Date: 20111222
  Serious: Yes (Hospitalization, Other)
  Sender: FDA-Public Use
  Company Number: 2011PROUSA00435

PATIENT
  Age: 59 Year
  Sex: Male
  Weight: 105.4 kg

DRUGS (6)
  1. DIOVAN [Concomitant]
  2. OMEPRAZOLE [Concomitant]
  3. SIMVASTATIN [Concomitant]
  4. METOPROLOL TARTRATE [Concomitant]
  5. LISINOPRIL [Concomitant]
  6. PROVENGE [Suspect]
     Indication: PROSTATE CANCER METASTATIC
     Dosage: 250 ML, SINGLE, INTRAVENOUS
     Route: 042
     Dates: start: 20110613, end: 20110613

REACTIONS (3)
  - INTRACRANIAL TUMOUR HAEMORRHAGE [None]
  - CONVULSION [None]
  - SINUSITIS [None]
